FAERS Safety Report 14552316 (Version 1)
Quarter: 2018Q1

REPORT INFORMATION
  Report Type: Report from Study
  Country: CA (occurrence: CA)
  Receive Date: 20180220
  Receipt Date: 20180220
  Transmission Date: 20180509
  Serious: Yes (Other)
  Sender: FDA-Public Use
  Company Number: CA-ROCHE-2070108

PATIENT
  Age: 62 Year
  Sex: Male
  Weight: 82.3 kg

DRUGS (8)
  1. CYCLOPHOSPHAMIDE. [Suspect]
     Active Substance: CYCLOPHOSPHAMIDE
     Indication: DIFFUSE LARGE B-CELL LYMPHOMA
     Dosage: DAY 1 OF EACH 21 DAY CYCLE?MOST RECENT DOSE 1040 MG OF CYCLOPHOSPHAMIDE PRIOR TO SAE ON 03/APR/2014
     Route: 042
     Dates: start: 20131129
  2. PREDNISONE. [Suspect]
     Active Substance: PREDNISONE
     Indication: DIFFUSE LARGE B-CELL LYMPHOMA
     Dosage: PREDNISONE 100 MG (OR EQUIVALENT PREDNISOLONE OR METHYLPREDNISOLONE), ADMINISTERED ORALLY ON DAYS 1-
     Route: 048
     Dates: start: 20131128
  3. RAMIPRIL. [Concomitant]
     Active Substance: RAMIPRIL
     Indication: HYPERTENSION
     Route: 065
     Dates: start: 2010, end: 201402
  4. RAMIPRIL. [Concomitant]
     Active Substance: RAMIPRIL
     Route: 065
     Dates: start: 201410
  5. OBINUTUZUMAB. [Suspect]
     Active Substance: OBINUTUZUMAB
     Indication: DIFFUSE LARGE B-CELL LYMPHOMA
     Dosage: ON DAY 1 OF EACH 21-DAY CYCLE FOR 8 CYCLES. DURING CYCLE 1, OBINUTUZUMAB WAS ALSO INFUSED ON DAYS 8
     Route: 042
     Dates: start: 20131128
  6. DOXORUBICIN [Suspect]
     Active Substance: DOXORUBICIN
     Indication: DIFFUSE LARGE B-CELL LYMPHOMA
     Dosage: DAY 1 OF EACH 21 DAY CYCLE?MOST RECENT DOSE 69 MG OF DOXORUBICIN PRIOR TO SAE ON 03/APR/2014
     Route: 042
     Dates: start: 20131128
  7. VINCRISTINE [Suspect]
     Active Substance: VINCRISTINE
     Indication: DIFFUSE LARGE B-CELL LYMPHOMA
     Dosage: DAY 1 OF EACH 21 DAY CYCLE?MOST RECENT DOSE 2 MG OF VINCRISTINE PRIOR TO SAE ON 03/APR/2014
     Route: 042
     Dates: start: 20131128
  8. LIPITOR [Concomitant]
     Active Substance: ATORVASTATIN CALCIUM
     Indication: BLOOD CHOLESTEROL INCREASED
     Route: 065
     Dates: start: 201403

REACTIONS (1)
  - Malignant melanoma [Recovering/Resolving]

NARRATIVE: CASE EVENT DATE: 20170424
